FAERS Safety Report 24921993 (Version 1)
Quarter: 2025Q1

REPORT INFORMATION
  Report Type: Report from Study
  Country: US (occurrence: US)
  Receive Date: 20250204
  Receipt Date: 20250204
  Transmission Date: 20250409
  Serious: Yes (Hospitalization)
  Sender: RANBAXY
  Company Number: US-SUN PHARMACEUTICAL INDUSTRIES LTD-2025R1-492023

PATIENT
  Sex: Female

DRUGS (3)
  1. CLOZAPINE [Suspect]
     Active Substance: CLOZAPINE
     Indication: Schizophrenia
     Route: 065
     Dates: start: 202201
  2. CLOZAPINE [Suspect]
     Active Substance: CLOZAPINE
     Route: 065
  3. SODIUM [Concomitant]
     Active Substance: SODIUM
     Indication: Constipation
     Route: 065

REACTIONS (1)
  - Aggression [Unknown]
